FAERS Safety Report 15185832 (Version 1)
Quarter: 2018Q3

REPORT INFORMATION
  Report Type: Spontaneous
  Country: US (occurrence: US)
  Receive Date: 20180723
  Receipt Date: 20180723
  Transmission Date: 20181010
  Serious: No
  Sender: FDA-Public Use
  Company Number: US-BAUSCH-BL-2017-035468

PATIENT
  Sex: Female
  Weight: 54.48 kg

DRUGS (1)
  1. OPCON?A [Suspect]
     Active Substance: NAPHAZOLINE HYDROCHLORIDE\PHENIRAMINE MALEATE
     Indication: MULTIPLE ALLERGIES
     Dosage: SINGLE
     Route: 047
     Dates: start: 20171218

REACTIONS (3)
  - Vision blurred [Recovering/Resolving]
  - Mydriasis [Recovering/Resolving]
  - Paraesthesia [Recovering/Resolving]
